FAERS Safety Report 7442781-9 (Version None)
Quarter: 2011Q2

REPORT INFORMATION
  Report Type: 
  Country: None (occurrence: None)
  Receive Date: 20110428
  Receipt Date: 20110419
  Transmission Date: 20111010
  Serious: Yes (Hospitalization)
  Sender: FDA-Public Use
  Company Number: FR-JNJFOC-20110404224

PATIENT
  Age: 72 Year
  Sex: Female
  Weight: 65 kg

DRUGS (10)
  1. METHOTREXATE [Concomitant]
     Indication: RHEUMATOID ARTHRITIS
     Route: 048
  2. CORTANCYL [Concomitant]
     Indication: RHEUMATOID ARTHRITIS
     Route: 048
  3. ACTONEL [Concomitant]
     Indication: MENOPAUSE
  4. VITAMIN D [Concomitant]
     Indication: HYPOVITAMINOSIS
  5. ACETAMINOPHEN W/ PROPOXYPHENE HCL [Concomitant]
     Indication: RHEUMATOID ARTHRITIS
     Route: 048
  6. GOLIMUMAB [Suspect]
     Indication: RHEUMATOID ARTHRITIS
     Route: 058
  7. SPECIAFOLDINE [Concomitant]
     Indication: ANAEMIA
  8. EUPANTOL [Concomitant]
     Indication: GASTROINTESTINAL DISORDER THERAPY
  9. GOLIMUMAB [Suspect]
     Route: 058
  10. BI-PROFENID [Concomitant]
     Indication: ILL-DEFINED DISORDER

REACTIONS (1)
  - SINUSITIS [None]
